FAERS Safety Report 25457961 (Version 1)
Quarter: 2025Q2

REPORT INFORMATION
  Report Type: Report from Study
  Country: RO (occurrence: RO)
  Receive Date: 20250620
  Receipt Date: 20250620
  Transmission Date: 20250716
  Serious: Yes (Death, Other)
  Sender: ABBVIE
  Company Number: RO-ABBVIE-6333535

PATIENT
  Age: 72 Year
  Sex: Female

DRUGS (1)
  1. GLECAPREVIR\PIBRENTASVIR [Suspect]
     Active Substance: GLECAPREVIR\PIBRENTASVIR
     Indication: Chronic hepatitis C
     Route: 048
     Dates: start: 20250205, end: 20250401

REACTIONS (2)
  - Cerebral haemorrhage [Fatal]
  - Hemiplegia [Fatal]

NARRATIVE: CASE EVENT DATE: 20250101
